FAERS Safety Report 6107188-5 (Version None)
Quarter: 2009Q1

REPORT INFORMATION
  Report Type: 
  Country: None (occurrence: None)
  Receive Date: 20090309
  Receipt Date: 20090227
  Transmission Date: 20090719
  Serious: Yes (Hospitalization)
  Sender: FDA-Public Use
  Company Number: JP-ELI_LILLY_AND_COMPANY-JP200903001098

PATIENT
  Sex: Male
  Weight: 60.1 kg

DRUGS (8)
  1. PEMETREXED [Suspect]
     Indication: PLEURAL MESOTHELIOMA MALIGNANT
     Dosage: 800 MG, OTHER
     Route: 042
     Dates: start: 20080528, end: 20080730
  2. CISPLATIN [Suspect]
     Indication: PLEURAL MESOTHELIOMA MALIGNANT
     Dosage: 120 MG, OTHER
     Route: 042
     Dates: start: 20080528, end: 20080730
  3. CYANOCOBALAMIN [Concomitant]
     Dosage: 1 MG, OTHER
     Route: 030
     Dates: start: 20080519, end: 20080519
  4. CYANOCOBALAMIN [Concomitant]
     Dosage: 1 MG, OTHER
     Route: 030
     Dates: start: 20080711, end: 20080711
  5. PANVITAN [Concomitant]
     Dosage: 1 MG, DAILY (1/D)
     Route: 048
     Dates: start: 20050821
  6. LENDORMIN [Concomitant]
     Indication: PROPHYLAXIS
     Dosage: 0.25 MG, DAILY (1/D)
     Route: 048
  7. SOLANAX [Concomitant]
     Indication: PROPHYLAXIS
     Dosage: 0.8 MG, DAILY (1/D)
     Route: 048
     Dates: start: 20080603, end: 20080630
  8. PARIET [Concomitant]
     Dosage: 10 MG, DAILY (1/D)
     Route: 048
     Dates: start: 20080804

REACTIONS (2)
  - CEREBRAL INFARCTION [None]
  - HICCUPS [None]
